FAERS Safety Report 11732974 (Version 2)
Quarter: 2015Q4

REPORT INFORMATION
  Report Type: Spontaneous
  Country: DE (occurrence: DE)
  Receive Date: 20151113
  Receipt Date: 20151123
  Transmission Date: 20160304
  Serious: Yes (Death)
  Sender: FDA-Public Use
  Company Number: DE-ACTELION-A-CH2015-126923

PATIENT
  Age: 53 Year
  Sex: Male

DRUGS (6)
  1. MARCUMAR [Suspect]
     Active Substance: PHENPROCOUMON
     Indication: CARDIAC VALVE DISEASE
     Dosage: UNK
     Route: 048
     Dates: start: 2004
  2. RAMIPRIL. [Concomitant]
     Active Substance: RAMIPRIL
     Indication: CARDIAC FAILURE
     Dosage: 2.5 MG, BID
     Route: 048
  3. TORASEMID [Concomitant]
     Active Substance: TORSEMIDE
     Indication: CARDIAC FAILURE
     Dosage: 10 MG, OD
     Route: 048
  4. OPSUMIT [Suspect]
     Active Substance: MACITENTAN
     Indication: PULMONARY HYPERTENSION
     Dosage: 10 MG, OD
     Route: 048
     Dates: start: 20140801, end: 20151105
  5. RIOCIGUAT [Suspect]
     Active Substance: RIOCIGUAT
     Indication: PULMONARY HYPERTENSION
     Dosage: 1 MG, TID
     Route: 048
     Dates: start: 20150201
  6. METOPROLOL [Suspect]
     Active Substance: METOPROLOL
     Indication: CARDIAC FAILURE
     Dosage: 47.5 MG, BID
     Route: 048

REACTIONS (1)
  - Death [Fatal]

NARRATIVE: CASE EVENT DATE: 20151105
